FAERS Safety Report 9438271 (Version 2)
Quarter: 2013Q3

REPORT INFORMATION
  Report Type: Spontaneous
  Country: US (occurrence: US)
  Receive Date: 20130802
  Receipt Date: 20130911
  Transmission Date: 20140515
  Serious: Yes (Hospitalization)
  Sender: FDA-Public Use
  Company Number: US-BAYER-2013-092351

PATIENT
  Age: 35 Year
  Sex: Female

DRUGS (4)
  1. YAZ [Suspect]
  2. ARIXTRA [Concomitant]
  3. TYLENOL #3 [Concomitant]
  4. IBUPROFEN [Concomitant]

REACTIONS (2)
  - Pulmonary embolism [None]
  - Deep vein thrombosis [Recovered/Resolved]
